FAERS Safety Report 10708493 (Version 1)
Quarter: 2015Q1

REPORT INFORMATION
  Report Type: Spontaneous
  Country: DE (occurrence: GB)
  Receive Date: 20150113
  Receipt Date: 20150113
  Transmission Date: 20150721
  Serious: Yes (Hospitalization, Other)
  Sender: FDA-Public Use
  Company Number: GB-FRI-1000073567

PATIENT
  Age: 83 Year
  Sex: Male

DRUGS (1)
  1. MEMANTINE [Suspect]
     Active Substance: MEMANTINE
     Indication: MEMORY IMPAIRMENT
     Dosage: 5 MG
     Route: 048

REACTIONS (4)
  - Syncope [Recovered/Resolved]
  - Hyponatraemia [Not Recovered/Not Resolved]
  - Product use issue [Recovered/Resolved]
  - Trifascicular block [Not Recovered/Not Resolved]
